FAERS Safety Report 7332091-2 (Version None)
Quarter: 2011Q1

REPORT INFORMATION
  Report Type: 
  Country: None (occurrence: None)
  Receive Date: 20110222
  Receipt Date: 20110214
  Transmission Date: 20110831
  Serious: Yes (Other)
  Sender: FDA-Public Use
  Company Number: EU-2011-10019

PATIENT
  Sex: Male

DRUGS (2)
  1. SAMSCA [Suspect]
     Indication: HYPONATRAEMIA
     Dosage: 15 MG MILLIGRAM(S), SINGLE, ORAL
     Route: 048
     Dates: start: 20110210, end: 20110210
  2. SAMSCA [Suspect]
     Indication: INAPPROPRIATE ANTIDIURETIC HORMONE SECRETION
     Dosage: 15 MG MILLIGRAM(S), SINGLE, ORAL
     Route: 048
     Dates: start: 20110210, end: 20110210

REACTIONS (1)
  - RAPID CORRECTION OF HYPONATRAEMIA [None]
